FAERS Safety Report 7245106-7 (Version None)
Quarter: 2011Q1

REPORT INFORMATION
  Report Type: 
  Country: None (occurrence: None)
  Receive Date: 20110126
  Receipt Date: 20110120
  Transmission Date: 20110831
  Serious: Yes (Hospitalization)
  Sender: FDA-Public Use
  Company Number: US-ABBOTT-11P-163-0699515-00

PATIENT
  Sex: Female
  Weight: 55.842 kg

DRUGS (7)
  1. VITAMIN B-12 [Concomitant]
     Indication: VITAMIN SUPPLEMENTATION
  2. HUMIRA [Suspect]
     Indication: CROHN'S DISEASE
     Dates: start: 20090101, end: 20100701
  3. SLO FE [Concomitant]
     Indication: ANAEMIA
  4. ASACOL [Concomitant]
     Indication: CROHN'S DISEASE
  5. PREDNISONE [Concomitant]
     Indication: CROHN'S DISEASE
  6. MULTIVITAMIN [Concomitant]
     Indication: VITAMIN SUPPLEMENTATION
  7. COUMADIN [Concomitant]
     Indication: PULMONARY EMBOLISM
     Dates: start: 20100901

REACTIONS (13)
  - DRUG INEFFECTIVE [None]
  - RECTAL HAEMORRHAGE [None]
  - PAIN [None]
  - FISTULA [None]
  - WEIGHT DECREASED [None]
  - CONSTIPATION [None]
  - PYREXIA [None]
  - MOBILITY DECREASED [None]
  - INTERNATIONAL NORMALISED RATIO INCREASED [None]
  - ABDOMINAL PAIN [None]
  - PULMONARY EMBOLISM [None]
  - CROHN'S DISEASE [None]
  - COLITIS [None]
